FAERS Safety Report 7898003-8 (Version None)
Quarter: 2011Q4

REPORT INFORMATION
  Report Type: 
  Country: None (occurrence: None)
  Receive Date: 20111103
  Receipt Date: 20111020
  Transmission Date: 20120403
  Serious: Yes (Death, Other)
  Sender: FDA-Public Use
  Company Number: 1000021778

PATIENT
  Age: 80 Year
  Sex: Male
  Weight: 100 kg

DRUGS (16)
  1. OXYGEN (OXYGEN) (OXYGEN) [Concomitant]
  2. TORSEMIDE [Concomitant]
  3. BAYMYCARD (NISOLDIPINE)(NISOLDIPINE) [Concomitant]
  4. NULYTELY (POLYETHYLENE GLYCOL, POTASSIUM CHLORIDE, SODIUM BICARBONATE) [Concomitant]
  5. PHENPROCOUMON ( PHENPROCOUMON) ( PHENPROCOUMON) [Concomitant]
  6. PREDNISOLONE [Concomitant]
  7. PANTOPRAZOLE (PANTOPRAZOLE)(PANTOPRAZOLE) [Concomitant]
  8. SYMBICORT (BUDESONIDE, FOMOTEROL FUMARATE)(BUDESONIDE, FOMOTEROL FUMAR [Concomitant]
  9. TRI-THIAZID (TRIAMTERENE, HYDROCHLOROTHIAZIDE)(TRIAMTERENE, HYDROCHLOR [Concomitant]
  10. THEOPHYLLINE [Concomitant]
  11. ROFLUMILAST (ROFLUMILAST) (TABLETS) [Suspect]
     Indication: CHRONIC OBSTRUCTIVE PULMONARY DISEASE
     Dosage: 500 MCG (500 MCG, 1  IN 1 D),ORAL
     Route: 048
     Dates: start: 20110329
  12. ACETYLCYSTEINE (ACETYLCYSTEINE)(ACETYLCYSTEINE) [Concomitant]
  13. RAMIPRIL [Concomitant]
  14. METAMIZOLE (METAMIZOLE) (METAMIZOLE) [Concomitant]
  15. TARGIN (OXYCODONE HYDROCHLORIDE, NALOXONE)(OXYCODONE HYDROCHLORIDE, NA [Concomitant]
  16. SPIRIVA (TIOTROPIUM BROMIDE) (TIOTROPIUM BROMIDE) [Concomitant]

REACTIONS (5)
  - CONDITION AGGRAVATED [None]
  - OSTEOPOROSIS [None]
  - SPINAL FRACTURE [None]
  - RESPIRATORY FAILURE [None]
  - PAIN [None]
